FAERS Safety Report 13686722 (Version 3)
Quarter: 2017Q3

REPORT INFORMATION
  Report Type: Report from Study
  Country: BE (occurrence: BE)
  Receive Date: 20170623
  Receipt Date: 20170714
  Transmission Date: 20171127
  Serious: Yes (Hospitalization)
  Sender: FDA-Public Use
  Company Number: BE-JNJFOC-20170429369

PATIENT
  Age: 81 Year
  Sex: Female
  Weight: 48 kg

DRUGS (18)
  1. HUMALOG [Concomitant]
     Active Substance: INSULIN LISPRO
     Dosage: 5E, SC,1/D, 17U
     Route: 065
  2. EMCORETIC [Concomitant]
     Active Substance: BISOPROLOL FUMARATE\HYDROCHLOROTHIAZIDE
     Dosage: DRAG 25-12, 1/D, 8U
     Route: 065
  3. HUMALOG [Concomitant]
     Active Substance: INSULIN LISPRO
     Dosage: 4E, SC,1/D, 12U
     Route: 065
  4. BURINEX [Concomitant]
     Active Substance: BUMETANIDE
     Dosage: 1/D, 12U
     Route: 065
  5. LIPITOR [Concomitant]
     Active Substance: ATORVASTATIN CALCIUM
     Dosage: 20 MG, 1/D, 20U
     Route: 065
  6. IBRUTINIB [Suspect]
     Active Substance: IBRUTINIB
     Indication: CHRONIC LYMPHOCYTIC LEUKAEMIA
     Route: 048
     Dates: start: 20160726, end: 20160909
  7. ASAFLOW [Concomitant]
     Active Substance: ASPIRIN
     Dosage: 1/D, 8U
     Route: 065
  8. LANTUS [Concomitant]
     Active Substance: INSULIN GLARGINE
     Dosage: 8E, SC, 1/D, 22U
     Route: 065
  9. IBRUTINIB [Suspect]
     Active Substance: IBRUTINIB
     Indication: CHRONIC LYMPHOCYTIC LEUKAEMIA
     Route: 048
     Dates: start: 20160914
  10. ALDACTONE [Concomitant]
     Active Substance: SPIRONOLACTONE
     Dosage: 1/D, 8U
     Route: 065
  11. APOCARD [Concomitant]
     Active Substance: FLECAINIDE ACETATE
     Dosage: CAPS RETARD 1/D, 12U
     Route: 065
  12. CEDOCARD [Concomitant]
     Active Substance: ISOSORBIDE DINITRATE
     Dosage: SUBL
     Route: 065
  13. CORUNO [Concomitant]
     Active Substance: MOLSIDOMINE
     Dosage: TABLET RETARD, 1/D, 12U
     Route: 065
  14. BRILIQUE [Concomitant]
     Active Substance: TICAGRELOR
     Dosage: 1 STUCKS, 2/D, 8U 20U, TOT 11-11-2016
     Route: 065
  15. HUMALOG [Concomitant]
     Active Substance: INSULIN LISPRO
     Dosage: 5E, SC,1/D, 8U
     Route: 065
  16. RAMIPRIL. [Concomitant]
     Active Substance: RAMIPRIL
     Dosage: 5 MG, 1/D, 8U
     Route: 065
  17. VASEXTEN [Concomitant]
     Active Substance: BARNIDIPINE HYDROCHLORIDE
     Dosage: 20 MG, 1/D, 12U
     Route: 065
  18. IBRUTINIB [Suspect]
     Active Substance: IBRUTINIB
     Indication: CHRONIC LYMPHOCYTIC LEUKAEMIA
     Route: 048
     Dates: start: 20170430

REACTIONS (5)
  - Decreased appetite [Recovered/Resolved]
  - Hypotension [Recovered/Resolved with Sequelae]
  - Malaise [Recovered/Resolved]
  - Pneumonia [Not Recovered/Not Resolved]
  - Respiratory tract infection [Unknown]

NARRATIVE: CASE EVENT DATE: 20160901
